FAERS Safety Report 18612350 (Version 1)
Quarter: 2020Q4

REPORT INFORMATION
  Report Type: Spontaneous
  Country: US (occurrence: US)
  Receive Date: 20201214
  Receipt Date: 20201214
  Transmission Date: 20210114
  Serious: No
  Sender: FDA-Public Use
  Company Number: US-PFIZER INC-2020485512

PATIENT
  Age: 60 Year
  Sex: Female
  Weight: 60.32 kg

DRUGS (7)
  1. RAPAMUNE [Suspect]
     Active Substance: SIROLIMUS
     Indication: RENAL AND PANCREAS TRANSPLANT
     Dosage: 1 MG, 1X/DAY
     Dates: start: 20020320
  2. AVAPRO [Concomitant]
     Active Substance: IRBESARTAN
     Indication: HYPERTENSION
     Dosage: 300 MG, 1X/DAY
  3. SYNTHROID [Concomitant]
     Active Substance: LEVOTHYROXINE SODIUM
     Dosage: 100 UG
  4. ENVARSUS XR [Suspect]
     Active Substance: TACROLIMUS
     Indication: IMMUNOSUPPRESSANT DRUG THERAPY
     Dosage: UNK
  5. IMODIUM [Concomitant]
     Active Substance: LOPERAMIDE HYDROCHLORIDE
     Indication: DIARRHOEA
     Dosage: UNK (I TAKE 4 MG A DAY OR MORE.)
  6. IRON [Concomitant]
     Active Substance: IRON
     Indication: ANAEMIA
     Dosage: 45 MG
  7. CLONIDINE. [Concomitant]
     Active Substance: CLONIDINE
     Dosage: 1 MG, 1X/DAY(EVERY NIGHT AT BEDTIME)

REACTIONS (2)
  - Fatigue [Unknown]
  - Off label use [Unknown]
